FAERS Safety Report 21663294 (Version 2)
Quarter: 2022Q4

REPORT INFORMATION
  Report Type: Spontaneous
  Country: US (occurrence: US)
  Receive Date: 20221130
  Receipt Date: 20221222
  Transmission Date: 20230113
  Serious: No
  Sender: FDA-Public Use
  Company Number: US-Fresenius Medical Care Renal Therapies Group-FMC-2211-001843

PATIENT
  Age: 70 Year
  Sex: Male
  Weight: 103 kg

DRUGS (17)
  1. DELFLEX WITH DEXTROSE 1.5% LOW MAGNESIUM LOW CALCIUM [Suspect]
     Active Substance: CALCIUM CHLORIDE\DEXTROSE\MAGNESIUM CHLORIDE\SODIUM CHLORIDE\SODIUM LACTATE
     Indication: End stage renal disease
     Dosage: 7 TIMES A WEEK, EXCHANGES 3, FILL VOL 1700 ML CYC THERAPY VOL 5100 ML CYC THERAPY TIME 8 HRS 30 MIN.
     Route: 033
  2. DELFLEX WITH DEXTROSE 2.5% LOW MAGNESIUM LOW CALCIUM [Suspect]
     Active Substance: CALCIUM CHLORIDE\DEXTROSE\MAGNESIUM CHLORIDE\SODIUM CHLORIDE\SODIUM LACTATE
     Indication: End stage renal disease
     Dosage: 7 TIMES A WEEK, EXCHANGES 3, FILL VOL 1700 ML CYC THERAPY VOL 5100 ML CYC THERAPY TIME 8 HRS 30 MIN.
     Route: 033
  3. DELFLEX WITH DEXTROSE 4.25% LOW MAGNESIUM LOW CALCIUM [Suspect]
     Active Substance: CALCIUM CHLORIDE\DEXTROSE\MAGNESIUM CHLORIDE\SODIUM CHLORIDE\SODIUM LACTATE
     Indication: End stage renal disease
     Dosage: 7 TIMES A WEEK, EXCHANGES 3, FILL VOL 1700 ML CYC THERAPY VOL 5100 ML CYC THERAPY TIME 8 HRS 30 MIN.
     Route: 033
  4. AMLODIPINE [Concomitant]
     Active Substance: AMLODIPINE BESYLATE
     Dosage: 10 MG ORAL 1 TABLET ONCE A DAY
  5. LOW DOSE ASPIRIN [Concomitant]
     Active Substance: ASPIRIN
     Dosage: 81 MG ORAL 1 TABLET ONCE A DAY
  6. CLOBETASOL [Concomitant]
     Active Substance: CLOBETASOL
  7. CLOPIDOGREL [Concomitant]
     Active Substance: CLOPIDOGREL BISULFATE
  8. EZETIMIBE [Concomitant]
     Active Substance: EZETIMIBE
  9. FUROSEMIDE [Concomitant]
     Active Substance: FUROSEMIDE
  10. Humalog U-100 Insulin [Concomitant]
  11. ISOSORBIDE MONONITRATE [Concomitant]
     Active Substance: ISOSORBIDE MONONITRATE
  12. Lantus U-100 Insulin [Concomitant]
     Dosage: 100 UNIT/ML SUBQ 1 UNIT EVERY NIGHT
  13. LOSARTAN [Concomitant]
     Active Substance: LOSARTAN
     Dosage: 100 MG ORAL 1 TABLET ONCE A DAY
  14. METOPROLOL TARTRATE [Concomitant]
     Active Substance: METOPROLOL TARTRATE
     Dosage: 25 MG ORAL 1/2 TABLET TWICE A DAY
  15. MINOXIDIL [Concomitant]
     Active Substance: MINOXIDIL
     Dosage: 2.5 MG ORAL 1 TABLET
  16. OMEPRAZOLE [Concomitant]
     Active Substance: OMEPRAZOLE
     Dosage: 40 MG ORAL 1 CAPSULE ONCE A DAY
  17. VITAMIN D3 [Concomitant]
     Active Substance: CHOLECALCIFEROL
     Dosage: 125 MCG ORAL ONCE A DAY

REACTIONS (1)
  - Inguinal hernia [Not Recovered/Not Resolved]
